FAERS Safety Report 7068460-8 (Version None)
Quarter: 2010Q4

REPORT INFORMATION
  Report Type: 
  Country: None (occurrence: None)
  Receive Date: 20101028
  Receipt Date: 20101026
  Transmission Date: 20110411
  Serious: Yes (Other)
  Sender: FDA-Public Use
  Company Number: US-SP-2010-06178

PATIENT
  Sex: Female

DRUGS (2)
  1. FLUZONE [Suspect]
     Indication: IMMUNISATION
     Route: 030
     Dates: start: 20101026, end: 20101026
  2. TUBERSOL [Suspect]
     Indication: TUBERCULIN TEST
     Route: 023
     Dates: start: 20101026, end: 20101026

REACTIONS (3)
  - DYSPNOEA [None]
  - MOVEMENT DISORDER [None]
  - SENSATION OF FOREIGN BODY [None]
